FAERS Safety Report 10035840 (Version 1)
Quarter: 2014Q1

REPORT INFORMATION
  Report Type: Spontaneous
  Country: US (occurrence: US)
  Receive Date: 20140325
  Receipt Date: 20140325
  Transmission Date: 20141002
  Serious: No
  Sender: FDA-Public Use
  Company Number: US-BAYER-2014-038566

PATIENT
  Age: 88 Year
  Sex: Male
  Weight: 77 kg

DRUGS (12)
  1. ALEVE CAPLET [Suspect]
     Indication: ANALGESIC THERAPY
     Dosage: 2 DF, UNK
     Route: 048
  2. ALEVE CAPLET [Suspect]
     Indication: SCIATICA
  3. BAYER ASPIRIN REGIMEN ADULT LOW STRENGTH [Suspect]
     Dosage: 1 DF, QD
     Route: 048
  4. ASPIRIN [Concomitant]
  5. AMLODIPINE [Concomitant]
  6. METOPROLOL TARTRATE [Concomitant]
  7. CRESTOR [Concomitant]
  8. FINASTERIDE [Concomitant]
  9. TAMSULOSIN [Concomitant]
  10. GLIMEPIRIDE [Concomitant]
  11. CENTRUM SILVER [Concomitant]
  12. JANUVIA [Concomitant]

REACTIONS (4)
  - Extra dose administered [None]
  - Incorrect drug administration duration [None]
  - Intentional drug misuse [None]
  - Drug ineffective [None]
